FAERS Safety Report 6903708-9 (Version None)
Quarter: 2010Q3

REPORT INFORMATION
  Report Type: 
  Country: None (occurrence: None)
  Receive Date: 20100803
  Receipt Date: 20081117
  Transmission Date: 20110219
  Serious: No
  Sender: FDA-Public Use
  Company Number: US-PFIZER INC-2008082271

PATIENT
  Sex: Female
  Weight: 68.04 kg

DRUGS (4)
  1. LYRICA [Suspect]
     Indication: SYSTEMIC SCLEROSIS
     Dates: start: 20070101
  2. CELEBREX [Suspect]
     Indication: PLEURISY
     Dates: start: 20050101
  3. IBUPROFEN [Suspect]
     Dates: start: 20050101, end: 20070101
  4. ANALGESICS [Concomitant]

REACTIONS (6)
  - ABDOMINAL DISCOMFORT [None]
  - CORRECTIVE LENS USER [None]
  - DIZZINESS [None]
  - DRUG INEFFECTIVE [None]
  - INAPPROPRIATE SCHEDULE OF DRUG ADMINISTRATION [None]
  - VISION BLURRED [None]
